FAERS Safety Report 20895736 (Version 1)
Quarter: 2022Q2

REPORT INFORMATION
  Report Type: Report from Study
  Country: EG (occurrence: EG)
  Receive Date: 20220531
  Receipt Date: 20220531
  Transmission Date: 20220721
  Serious: Yes (Other)
  Sender: FDA-Public Use
  Company Number: EG-NOVARTISPH-NVSC2022EG118028

PATIENT
  Age: 34 Year
  Sex: Male

DRUGS (4)
  1. COSENTYX [Suspect]
     Active Substance: SECUKINUMAB
     Indication: Ankylosing spondylitis
     Dosage: UNK, QW (1 PREFILLED PEN ONCE WEEKLY FOR A DURATION OF ONE MONTH (4 WEEKS)
     Route: 058
     Dates: start: 202110
  2. COSENTYX [Suspect]
     Active Substance: SECUKINUMAB
     Dosage: UNK, QMO (PREFILLED PEN ONCE MONTHLY FOR A DURATION OF 8 MONTHS (TOTAL OF 8 DOSES)
     Route: 058
  3. COSENTYX [Suspect]
     Active Substance: SECUKINUMAB
     Dosage: ONE PREFILLED PEN ONCE EVERY ONE MONTH AND HALF FOR A DURATION OF 4 MONTHS AND HALF BASED ON HCP DEC
     Route: 058
     Dates: end: 20220501
  4. COSENTYX [Suspect]
     Active Substance: SECUKINUMAB
     Dosage: 150 MG (ONCE EVERY 40 DAYS STARTING FROM THE FOURTH)
     Route: 058
     Dates: end: 20220501

REACTIONS (9)
  - Gait disturbance [Not Recovered/Not Resolved]
  - Musculoskeletal stiffness [Not Recovered/Not Resolved]
  - Therapeutic product effect incomplete [Not Recovered/Not Resolved]
  - Pain [Not Recovered/Not Resolved]
  - Fatigue [Not Recovered/Not Resolved]
  - Headache [Not Recovered/Not Resolved]
  - Dyspepsia [Unknown]
  - Product dose omission issue [Unknown]
  - Inappropriate schedule of product administration [Recovered/Resolved]

NARRATIVE: CASE EVENT DATE: 20211001
